FAERS Safety Report 15307441 (Version 1)
Quarter: 2018Q3

REPORT INFORMATION
  Report Type: Spontaneous
  Country: US (occurrence: US)
  Receive Date: 20180822
  Receipt Date: 20180822
  Transmission Date: 20181010
  Serious: Yes (Other)
  Sender: FDA-Public Use
  Company Number: US-TEVA-2018-US-946467

PATIENT
  Age: 46 Year
  Sex: Male

DRUGS (2)
  1. BROMOCRIPTINE [Concomitant]
     Active Substance: BROMOCRIPTINE
     Indication: SECONDARY HYPOGONADISM
     Route: 065
  2. CLOBETASOL [Suspect]
     Active Substance: CLOBETASOL
     Indication: PSORIASIS
     Route: 061

REACTIONS (3)
  - Primary hypogonadism [Unknown]
  - Secondary adrenocortical insufficiency [Unknown]
  - Hypothalamic pituitary adrenal axis suppression [Unknown]
